FAERS Safety Report 9705794 (Version 1)
Quarter: 2013Q4

REPORT INFORMATION
  Report Type: Spontaneous
  Country: US (occurrence: US)
  Receive Date: 20131122
  Receipt Date: 20131122
  Transmission Date: 20140711
  Serious: No
  Sender: FDA-Public Use
  Company Number: US-GILEAD-2008-0018051

PATIENT
  Sex: Male
  Weight: 96.16 kg

DRUGS (13)
  1. LETAIRIS [Suspect]
     Indication: PULMONARY ARTERIAL HYPERTENSION
     Route: 048
     Dates: start: 20080830
  2. ALLOPURINOL [Concomitant]
     Route: 048
  3. TICLID [Concomitant]
     Route: 048
  4. BACTRIM [Concomitant]
     Route: 048
  5. COREG [Concomitant]
     Route: 048
  6. PROTONIX [Concomitant]
     Route: 048
  7. LASIX [Concomitant]
     Route: 048
  8. PREDNISONE [Concomitant]
     Dosage: AS DIRECTED
     Route: 048
  9. RAMIPRIL [Concomitant]
     Route: 047
  10. REVATIO [Concomitant]
     Route: 048
  11. LIPITOR [Concomitant]
     Route: 048
  12. CARDIZEM [Concomitant]
     Route: 047
  13. ASPIRIN [Concomitant]
     Route: 048

REACTIONS (2)
  - Rash erythematous [Unknown]
  - Pruritus [Unknown]
